FAERS Safety Report 5826817-4 (Version None)
Quarter: 2008Q3

REPORT INFORMATION
  Report Type: 
  Country: None (occurrence: None)
  Receive Date: 20080725
  Receipt Date: 20080721
  Transmission Date: 20090109
  Serious: Yes (Hospitalization)
  Sender: FDA-Public Use
  Company Number: CERZ-1000301

PATIENT
  Age: 47 Year
  Sex: Female

DRUGS (1)
  1. CEREZYME [Suspect]
     Indication: GAUCHER'S DISEASE
     Dosage: 4200 U, Q2W,INTRAVENOUS
     Route: 042
     Dates: start: 20080715

REACTIONS (2)
  - FALL [None]
  - UPPER LIMB FRACTURE [None]
